FAERS Safety Report 5084033-0 (Version None)
Quarter: 2006Q3

REPORT INFORMATION
  Report Type: 
  Country: None (occurrence: None)
  Receive Date: 20060819
  Receipt Date: 20060515
  Transmission Date: 20061208
  Serious: Yes (Hospitalization)
  Sender: FDA-Public Use
  Company Number: US-BOEHRINGER INGELHEIM PHARMACEUTICALS, INC.-2006-BP-05458BP

PATIENT
  Sex: Male

DRUGS (1)
  1. VIRAMUNE [Suspect]
     Indication: HIV INFECTION
     Route: 048
     Dates: start: 20060331, end: 20060428

REACTIONS (4)
  - JAUNDICE [None]
  - LIVER FUNCTION TEST ABNORMAL [None]
  - PANCREATITIS [None]
  - PROTHROMBIN TIME PROLONGED [None]
